FAERS Safety Report 9442418 (Version 1)
Quarter: 2013Q3

REPORT INFORMATION
  Report Type: Spontaneous
  Country: US (occurrence: US)
  Receive Date: 20130806
  Receipt Date: 20130806
  Transmission Date: 20140515
  Serious: No
  Sender: FDA-Public Use
  Company Number: US-GLAXOSMITHKLINE-A1023428A

PATIENT
  Age: 67 Year
  Sex: Female

DRUGS (5)
  1. ADVAIR [Suspect]
     Indication: ASTHMA
     Dosage: 1PUFF PER DAY
     Route: 055
     Dates: start: 20130429
  2. ADVAIR [Suspect]
     Indication: ASTHMA
     Dosage: 2PUFF TWICE PER DAY
     Route: 055
     Dates: start: 2010, end: 2010
  3. SINGULAIR [Concomitant]
  4. VERAPAMIL [Concomitant]
  5. ZETIA [Concomitant]

REACTIONS (3)
  - Aphonia [Unknown]
  - Dyspnoea [Unknown]
  - Throat irritation [Unknown]
